FAERS Safety Report 20067495 (Version 3)
Quarter: 2023Q4

REPORT INFORMATION
  Report Type: Report from Study
  Country: ZA (occurrence: ZA)
  Receive Date: 20211115
  Receipt Date: 20231016
  Transmission Date: 20240110
  Serious: Yes (Other)
  Sender: FDA-Public Use
  Company Number: ZA-GLAXOSMITHKLINE-ZA2021140772

PATIENT
  Age: 71 Year
  Sex: Female

DRUGS (2)
  1. RECOMBINANT RESPIRATORY SYNCYTIAL VIRUS PRE-FUSION F PROTEIN [Suspect]
     Active Substance: RECOMBINANT RESPIRATORY SYNCYTIAL VIRUS PRE-FUSION F PROTEIN
     Indication: Prophylaxis
     Dosage: .5 ML
     Route: 030
     Dates: start: 20210529
  2. FLUARIX QUADRIVALENT 2021/2022 [Suspect]
     Active Substance: INFLUENZA A VIRUS A/TASMANIA/503/2020 IVR-221 (H3N2) ANTIGEN (FORMALDEHYDE INACTIVATED)\INFLUENZA A
     Indication: Prophylaxis
     Dosage: .5 ML
     Route: 030
     Dates: start: 20210529

REACTIONS (1)
  - Cerebrovascular accident [Recovered/Resolved with Sequelae]

NARRATIVE: CASE EVENT DATE: 20210620
